FAERS Safety Report 16889250 (Version 1)
Quarter: 2019Q4

REPORT INFORMATION
  Report Type: Report from Study
  Country: US (occurrence: US)
  Receive Date: 20191007
  Receipt Date: 20191007
  Transmission Date: 20200122
  Serious: Yes (Other)
  Sender: FDA-Public Use
  Company Number: US-ROCHE-2431574

PATIENT
  Age: 28 Year
  Sex: Male
  Weight: 95.9 kg

DRUGS (4)
  1. 5-FLUOROURACIL [FLUOROURACIL] [Suspect]
     Active Substance: FLUOROURACIL
     Indication: ADENOCARCINOMA OF COLON
     Dosage: LAST DOSE ADMINISTERED: 29/JUN/2018?ON DAY 1 FOLLOWED BY 2400 MG/M2 IV OVER 46 HOURS DAYS 1-3
     Route: 040
     Dates: start: 20180627
  2. OXALIPLATIN. [Suspect]
     Active Substance: OXALIPLATIN
     Indication: ADENOCARCINOMA OF COLON
     Dosage: 2 HOURS ON DAY 1
     Route: 042
     Dates: start: 20180627
  3. LEUCOVORIN CALCIUM. [Suspect]
     Active Substance: LEUCOVORIN CALCIUM
     Indication: ADENOCARCINOMA OF COLON
     Dosage: 2 HOURS ON DAY 1
     Route: 042
     Dates: start: 20180627
  4. ATEZOLIZUMAB. [Suspect]
     Active Substance: ATEZOLIZUMAB
     Indication: ADENOCARCINOMA OF COLON
     Route: 042
     Dates: start: 20180627

REACTIONS (2)
  - Hypertension [Recovered/Resolved]
  - Blood creatinine increased [Recovered/Resolved]

NARRATIVE: CASE EVENT DATE: 20180710
